FAERS Safety Report 8780464 (Version 1)
Quarter: 2012Q4

REPORT INFORMATION
  Report Type: Spontaneous
  Country: IN (occurrence: None)
  Receive Date: 20120830
  Receipt Date: 20120830
  Transmission Date: 20130627
  Serious: Yes (Other)
  Sender: FDA-Public Use
  Company Number: 2012P1054480

PATIENT
  Age: 50 Year
  Sex: Female

DRUGS (4)
  1. METRONIDAZOLE [Suspect]
     Indication: DIARRHEA
  2. TINIDAZOLE [Suspect]
     Indication: DIARRHEA
  3. NORFLOXACIN [Concomitant]
  4. LOPERAMIDE [Concomitant]

REACTIONS (7)
  - Peripheral sensorimotor neuropathy [None]
  - Normochromic normocytic anaemia [None]
  - Leukopenia [None]
  - Toxic encephalopathy [None]
  - Vasculitis [None]
  - Gait disturbance [None]
  - Toxicity to various agents [None]
